FAERS Safety Report 4448716-5 (Version None)
Quarter: 2004Q3

REPORT INFORMATION
  Report Type: 
  Country: None (occurrence: None)
  Receive Date: 20040909
  Receipt Date: 20040831
  Transmission Date: 20050211
  Serious: Yes (Hospitalization, Other)
  Sender: FDA-Public Use
  Company Number: 2004-08-1765

PATIENT
  Age: 51 Year
  Sex: Female

DRUGS (3)
  1. INTRON A [Suspect]
     Indication: HEPATITIS C
     Dosage: 6 MU TIW SUBCUTANEOUS
     Route: 058
     Dates: start: 20031101
  2. REBETOL [Suspect]
     Indication: HEPATITIS C
     Dosage: 1000 MG QD ORAL
     Route: 048
     Dates: start: 20031101
  3. PARACETAMOL [Concomitant]

REACTIONS (5)
  - BRAIN OEDEMA [None]
  - CONVULSION [None]
  - DEPRESSED LEVEL OF CONSCIOUSNESS [None]
  - HYPONATRAEMIA [None]
  - WATER INTOXICATION [None]
